FAERS Safety Report 11276120 (Version 2)
Quarter: 2015Q3

REPORT INFORMATION
  Report Type: Report from Study
  Country: MX (occurrence: MX)
  Receive Date: 20150716
  Receipt Date: 20150811
  Transmission Date: 20151125
  Serious: Yes (Death, Other)
  Sender: FDA-Public Use
  Company Number: PHHY2015MX085572

PATIENT
  Sex: Female
  Weight: 48 kg

DRUGS (1)
  1. GLIVEC [Suspect]
     Active Substance: IMATINIB MESYLATE
     Indication: CHRONIC MYELOID LEUKAEMIA
     Dosage: 400 MG, UNK
     Route: 065

REACTIONS (13)
  - Septic shock [Fatal]
  - Bacteraemia [Fatal]
  - Chronic myeloid leukaemia [Fatal]
  - Emphysema [Unknown]
  - Chronic graft versus host disease in skin [Fatal]
  - Major depression [Unknown]
  - Pulmonary fistula [Unknown]
  - Malignant neoplasm progression [Fatal]
  - Neuropathy peripheral [Unknown]
  - Graft versus host disease in lung [Fatal]
  - Chronic graft versus host disease in liver [Fatal]
  - Pulmonary necrosis [Unknown]
  - Escherichia infection [Unknown]
